FAERS Safety Report 6433371-5 (Version None)
Quarter: 2009Q4

REPORT INFORMATION
  Report Type: 
  Country: None (occurrence: None)
  Receive Date: 20091105
  Receipt Date: 20091016
  Transmission Date: 20100525
  Serious: Yes (Death, Life-Threatening, Hospitalization)
  Sender: FDA-Public Use
  Company Number: WAES 0910USA01525

PATIENT
  Age: 68 Year
  Sex: Male
  Weight: 71.6683 kg

DRUGS (10)
  1. CAP VORINOSTAT UNK [Suspect]
     Indication: ADENOCARCINOMA
     Dosage: 400 MG/DAILY/PO
     Route: 048
     Dates: start: 20091005, end: 20091011
  2. IRINOTECAN HCL [Suspect]
     Indication: ADENOCARCINOMA
     Dosage: 338.4 MG/2XW/IV
     Route: 042
     Dates: start: 20091005, end: 20091005
  3. LEUCOVORIN CALCIUM [Suspect]
     Indication: OESOPHAGEAL ADENOCARCINOMA
     Dosage: 752 MG/2XW/IV
     Route: 042
     Dates: start: 20091005, end: 20091005
  4. FLUOROURACIL [Suspect]
     Indication: OESOPHAGEAL ADENOCARCINOMA
     Dosage: 752 MG/2XW/IV, 4512 MG/2XW/IV
     Route: 042
     Dates: start: 20091005, end: 20091005
  5. FLUOROURACIL [Suspect]
     Indication: OESOPHAGEAL ADENOCARCINOMA
     Dosage: 752 MG/2XW/IV, 4512 MG/2XW/IV
     Route: 042
     Dates: start: 20091005, end: 20091007
  6. LIPITOR [Concomitant]
  7. REGLAN [Concomitant]
  8. ZOLOFT [Concomitant]
  9. ATENOLOL [Concomitant]
  10. ISOSORBIDE [Concomitant]

REACTIONS (4)
  - DEHYDRATION [None]
  - DIARRHOEA [None]
  - LEUKOPENIA [None]
  - LOBAR PNEUMONIA [None]
